FAERS Safety Report 16735628 (Version 1)
Quarter: 2019Q3

REPORT INFORMATION
  Report Type: Spontaneous
  Country: US (occurrence: US)
  Receive Date: 20190823
  Receipt Date: 20190823
  Transmission Date: 20191005
  Serious: Yes (Other)
  Sender: FDA-Public Use
  Company Number: None

PATIENT
  Age: 71 Year
  Sex: Female
  Weight: 56.25 kg

DRUGS (1)
  1. BUPRENORPHINE. [Suspect]
     Active Substance: BUPRENORPHINE
     Indication: PAIN
     Dosage: ?          OTHER FREQUENCY:ONCE EVERY WEEK;?
     Route: 062
     Dates: start: 20190528, end: 20190816

REACTIONS (3)
  - Application site haemorrhage [None]
  - Application site pain [None]
  - Rash pustular [None]

NARRATIVE: CASE EVENT DATE: 20190823
